FAERS Safety Report 13659745 (Version 1)
Quarter: 2017Q2

REPORT INFORMATION
  Report Type: Spontaneous
  Country: US (occurrence: US)
  Receive Date: 20170616
  Receipt Date: 20170616
  Transmission Date: 20170830
  Serious: Yes (Life-Threatening, Hospitalization, Disabling)
  Sender: FDA-Public Use
  Company Number: None

PATIENT
  Age: 30 Year
  Sex: Female
  Weight: 90.72 kg

DRUGS (4)
  1. VITAMINS [Concomitant]
     Active Substance: VITAMINS
  2. LAMICTAL [Suspect]
     Active Substance: LAMOTRIGINE
     Indication: BIPOLAR DISORDER
     Dosage: 100 MG TAB BROKE IN QUARTERS TO START AT 25 MG ?1 PILL = 100 MG ?1 BY MOUTH EVERY DAY MOUTH
     Route: 048
     Dates: start: 20131010, end: 20140130
  3. POTASSIUM [Concomitant]
     Active Substance: POTASSIUM
  4. MINERALS [Concomitant]
     Active Substance: MINERALS

REACTIONS (14)
  - Memory impairment [None]
  - Influenza [None]
  - Affect lability [None]
  - Tinnitus [None]
  - Speech disorder [None]
  - Vomiting [None]
  - Hot flush [None]
  - Arthralgia [None]
  - Rash erythematous [None]
  - Clumsiness [None]
  - Bone pain [None]
  - Muscle atrophy [None]
  - Insomnia [None]
  - Ear pain [None]

NARRATIVE: CASE EVENT DATE: 20131101
